FAERS Safety Report 13362614 (Version 1)
Quarter: 2017Q1

REPORT INFORMATION
  Report Type: Spontaneous
  Country: US (occurrence: US)
  Receive Date: 20170322
  Receipt Date: 20170322
  Transmission Date: 20170429
  Serious: Yes (Hospitalization)
  Sender: FDA-Public Use
  Company Number: None

PATIENT
  Age: 63 Year
  Sex: Male

DRUGS (10)
  1. VICTOZA [Concomitant]
     Active Substance: LIRAGLUTIDE
  2. FERROUS [Concomitant]
     Active Substance: IRON
  3. METOPROLOL TARTRATE. [Concomitant]
     Active Substance: METOPROLOL TARTRATE
  4. SILDENAFIL 20MG [Suspect]
     Active Substance: SILDENAFIL
     Indication: PRODUCT USED FOR UNKNOWN INDICATION
     Route: 048
     Dates: start: 20160205
  5. ANTIOXIDANT [Concomitant]
     Active Substance: UNSPECIFIED INGREDIENT
  6. FOLIC ACID. [Concomitant]
     Active Substance: FOLIC ACID
  7. FUROSEMIDE. [Concomitant]
     Active Substance: FUROSEMIDE
  8. METOLAZONE. [Concomitant]
     Active Substance: METOLAZONE
  9. AMIODARONE [Concomitant]
     Active Substance: AMIODARONE
  10. PREDNISONE. [Concomitant]
     Active Substance: PREDNISONE

REACTIONS (1)
  - Hospitalisation [None]

NARRATIVE: CASE EVENT DATE: 20170214
